FAERS Safety Report 6927507-7 (Version None)
Quarter: 2010Q3

REPORT INFORMATION
  Report Type: 
  Country: None (occurrence: None)
  Receive Date: 20100817
  Receipt Date: 20100807
  Transmission Date: 20110219
  Serious: Yes (Other)
  Sender: FDA-Public Use
  Company Number: US-BAYER-201018904BCC

PATIENT
  Age: 69 Year
  Sex: Female
  Weight: 78 kg

DRUGS (6)
  1. PHILLIPS' LIQUID GELS STOOL SOFTENER [Suspect]
     Indication: CONSTIPATION
     Dosage: TOTAL DAILY DOSE: 4 DF
     Route: 048
     Dates: start: 20100806
  2. METFORMIN [Concomitant]
     Route: 065
  3. AMLODIPINE [Concomitant]
     Route: 065
  4. CLONIDINE [Concomitant]
     Route: 065
  5. ENALAPRIL [Concomitant]
     Route: 065
  6. HYDROCHLOROTHIAZIDE [Concomitant]
     Route: 065

REACTIONS (2)
  - DIVERTICULUM [None]
  - HAEMATOCHEZIA [None]
